FAERS Safety Report 20444901 (Version 1)
Quarter: 2022Q1

REPORT INFORMATION
  Report Type: Report from Study
  Country: US (occurrence: US)
  Receive Date: 20220208
  Receipt Date: 20220208
  Transmission Date: 20220423
  Serious: Yes (Hospitalization, Other)
  Sender: FDA-Public Use
  Company Number: US-KARYOPHARM-2022KPT000124

PATIENT
  Age: 57 Year
  Sex: Female

DRUGS (19)
  1. SELINEXOR [Suspect]
     Active Substance: SELINEXOR
     Indication: Plasma cell myeloma
     Dosage: 60 MG, ON DAYS 1, 8, AND 15
     Route: 048
     Dates: start: 20211222
  2. IXAZOMIB [Suspect]
     Active Substance: IXAZOMIB
     Indication: Plasma cell myeloma
     Dosage: 4 MG, ON DAYS 1, 8, AND 15
     Route: 048
     Dates: start: 20211222
  3. POMALIDOMIDE [Suspect]
     Active Substance: POMALIDOMIDE
     Indication: Plasma cell myeloma
     Dosage: 3 MG, ON DAYS 1-21
     Route: 048
     Dates: start: 20211222
  4. DEXAMETHASONE [Suspect]
     Active Substance: DEXAMETHASONE
     Indication: Plasma cell myeloma
     Dosage: 40 MG, ON DAYS 1, 8, 15, AND 22
     Route: 048
     Dates: start: 20211222
  5. ALDACTONE [Concomitant]
     Active Substance: SPIRONOLACTONE
     Dosage: 25 MG, QD
     Route: 048
     Dates: start: 20210226
  6. DILAUDID [Concomitant]
     Active Substance: HYDROMORPHONE HYDROCHLORIDE
     Dosage: 2 MG, PRN
     Route: 048
     Dates: start: 20210331
  7. AMBIEN [Concomitant]
     Active Substance: ZOLPIDEM TARTRATE
     Dosage: 5 MG, PRN
     Route: 048
     Dates: start: 20210401
  8. GABAPENTIN [Concomitant]
     Active Substance: GABAPENTIN
     Dosage: 800 MG, QD
     Route: 048
     Dates: start: 20210405
  9. PROTONIX [Concomitant]
     Active Substance: PANTOPRAZOLE SODIUM
     Dosage: 40 MG, QD
     Route: 048
     Dates: start: 20210408
  10. FLONASE [Concomitant]
     Active Substance: FLUTICASONE PROPIONATE
     Dosage: 2 G, BID
     Dates: start: 20210528
  11. ALBUTEROL SULFATE [Concomitant]
     Active Substance: ALBUTEROL SULFATE
     Dosage: 108 PUFF PRN
     Dates: start: 20210528
  12. HYGROTON [Concomitant]
     Active Substance: CHLORTHALIDONE
     Dosage: 50 MG, PRN
     Route: 048
     Dates: start: 20210604
  13. PRILOSEC [Concomitant]
     Active Substance: OMEPRAZOLE MAGNESIUM
     Dosage: 20 MG, QD
     Route: 048
     Dates: start: 20210817
  14. ACYCLOVIR [Concomitant]
     Active Substance: ACYCLOVIR
     Dosage: 400 MG, BID
     Route: 048
     Dates: start: 20210824
  15. DICYCLOMINE HYDROCHLORIDE [Concomitant]
     Active Substance: DICYCLOMINE HYDROCHLORIDE
     Dosage: 20 MG, QD
     Route: 048
     Dates: start: 20210901
  16. MONTELUKAST [Concomitant]
     Active Substance: MONTELUKAST SODIUM
     Dosage: 10 MG, QD
     Route: 048
     Dates: start: 29210923
  17. ZOFRAN [Concomitant]
     Active Substance: ONDANSETRON HYDROCHLORIDE
     Dosage: 8 MG, PRN
     Route: 048
     Dates: start: 20211222
  18. ASPIRIN [Concomitant]
     Active Substance: ASPIRIN
     Dosage: 81 MG, QD
     Route: 048
     Dates: start: 20211222
  19. LOPRESSOR [Concomitant]
     Active Substance: METOPROLOL TARTRATE
     Dosage: 25 MG, QD
     Route: 048
     Dates: start: 20200213

REACTIONS (1)
  - Chest pain [Recovered/Resolved]

NARRATIVE: CASE EVENT DATE: 20220115
